FAERS Safety Report 6999631-4 (Version None)
Quarter: 2010Q3

REPORT INFORMATION
  Report Type: 
  Country: None (occurrence: None)
  Receive Date: 20100920
  Receipt Date: 20100303
  Transmission Date: 20110219
  Serious: No
  Sender: FDA-Public Use
  Company Number: US-ASTRAZENECA-2010SE09337

PATIENT
  Sex: Female

DRUGS (5)
  1. SEROQUEL [Suspect]
     Indication: BIPOLAR DISORDER
     Route: 048
     Dates: start: 20090101, end: 20090101
  2. SEROQUEL [Suspect]
     Route: 048
  3. BENADRYL [Concomitant]
     Route: 065
  4. KLONOPIN [Concomitant]
     Route: 065
  5. LITHIUM CARBONATE [Concomitant]
     Route: 065

REACTIONS (3)
  - AMNESIA [None]
  - IMPAIRED SELF-CARE [None]
  - SOMNOLENCE [None]
